FAERS Safety Report 21488663 (Version 3)
Quarter: 2023Q4

REPORT INFORMATION
  Report Type: Spontaneous
  Country: SK (occurrence: SK)
  Receive Date: 20221021
  Receipt Date: 20231030
  Transmission Date: 20240109
  Serious: Yes (Death)
  Sender: FDA-Public Use
  Company Number: SK-PHARMAESSENTIA-SK-2022-PEC-000827

PATIENT
  Sex: Female

DRUGS (1)
  1. BESREMI [Suspect]
     Active Substance: ROPEGINTERFERON ALFA-2B-NJFT
     Indication: Primary myelofibrosis
     Dosage: 50 MCG, Q2W
     Route: 058
     Dates: start: 20211207, end: 20220430

REACTIONS (2)
  - Malignant melanoma [Fatal]
  - Off label use [Unknown]

NARRATIVE: CASE EVENT DATE: 20211207
